FAERS Safety Report 6454207-2 (Version None)
Quarter: 2009Q4

REPORT INFORMATION
  Report Type: 
  Country: None (occurrence: None)
  Receive Date: 20091124
  Receipt Date: 20091120
  Transmission Date: 20100525
  Serious: Yes (Hospitalization)
  Sender: FDA-Public Use
  Company Number: CA-BRISTOL-MYERS SQUIBB COMPANY-14557201

PATIENT
  Age: 87 Year
  Sex: Male
  Weight: 101 kg

DRUGS (3)
  1. IRBESARTAN [Suspect]
     Indication: HYPERTENSION
     Dates: start: 20040217
  2. CLOPIDOGREL BISULFATE [Suspect]
     Indication: PROPHYLAXIS
     Dates: start: 20040217
  3. ASPIRIN [Suspect]
     Indication: PROPHYLAXIS
     Dates: start: 20040217

REACTIONS (1)
  - FALL [None]
